FAERS Safety Report 16931242 (Version 2)
Quarter: 2019Q4

REPORT INFORMATION
  Report Type: Spontaneous
  Country: US (occurrence: US)
  Receive Date: 20191017
  Receipt Date: 20191028
  Transmission Date: 20200122
  Serious: Yes (Other)
  Sender: FDA-Public Use
  Company Number: US-AMERICAN REGENT INC-2019002212

PATIENT
  Age: 46 Year
  Sex: Female

DRUGS (1)
  1. NICARDIPINE HYDROCHLORIDE INJECTION (0735-10) [Suspect]
     Active Substance: NICARDIPINE HYDROCHLORIDE
     Indication: BLOOD PRESSURE INCREASED
     Dosage: UNK
     Route: 042

REACTIONS (3)
  - Cerebral vasoconstriction [Unknown]
  - Product use in unapproved indication [Unknown]
  - Paradoxical drug reaction [Unknown]
